FAERS Safety Report 5578440-7 (Version None)
Quarter: 2007Q4

REPORT INFORMATION
  Report Type: 
  Country: None (occurrence: None)
  Receive Date: 20071227
  Receipt Date: 20071218
  Transmission Date: 20080405
  Serious: Yes (Hospitalization)
  Sender: FDA-Public Use
  Company Number: 2007SP024921

PATIENT
  Age: 58 Year
  Sex: Female
  Weight: 63.6 kg

DRUGS (5)
  1. TEMOZOLOMIDE [Suspect]
     Indication: GLIOBLASTOMA MULTIFORME
     Dosage: 350 MG; PO
     Route: 048
     Dates: start: 20070711
  2. TEMOZOLOMIDE [Suspect]
     Indication: GLIOBLASTOMA MULTIFORME
     Dosage: 350 MG; PO
     Route: 048
     Dates: start: 20071123
  3. DILANTIN [Concomitant]
  4. POTASSIUM CHLORIDE [Concomitant]
  5. ZOFRAN [Concomitant]

REACTIONS (4)
  - NAUSEA [None]
  - PNEUMONIA [None]
  - VOMITING [None]
  - WHITE BLOOD CELL COUNT DECREASED [None]
